FAERS Safety Report 16253610 (Version 1)
Quarter: 2019Q2

REPORT INFORMATION
  Report Type: Spontaneous
  Country: US (occurrence: US)
  Receive Date: 20190430
  Receipt Date: 20190430
  Transmission Date: 20190711
  Serious: No
  Sender: FDA-Public Use
  Company Number: US-UNITED THERAPEUTICS-UNT-2019-007520

PATIENT
  Age: 68 Year
  Sex: Female
  Weight: 53.97 kg

DRUGS (3)
  1. REMODULIN [Suspect]
     Active Substance: TREPROSTINIL
     Indication: PULMONARY ARTERIAL HYPERTENSION
     Dosage: 0.089 ?G/KG, CONTINUING
     Route: 058
     Dates: start: 20131016
  2. COUMADIN [Concomitant]
     Active Substance: WARFARIN SODIUM
     Indication: PRODUCT USED FOR UNKNOWN INDICATION
     Route: 065
  3. NIFEDIPINE. [Concomitant]
     Active Substance: NIFEDIPINE
     Indication: PRODUCT USED FOR UNKNOWN INDICATION
     Route: 065

REACTIONS (5)
  - Gout [Unknown]
  - Dyspnoea exertional [Unknown]
  - Peripheral swelling [Unknown]
  - Hyposmia [Unknown]
  - Pain in jaw [Unknown]

NARRATIVE: CASE EVENT DATE: 20190422
